FAERS Safety Report 7803247-7 (Version None)
Quarter: 2011Q4

REPORT INFORMATION
  Report Type: 
  Country: None (occurrence: None)
  Receive Date: 20111007
  Receipt Date: 20110930
  Transmission Date: 20120403
  Serious: Yes (Hospitalization)
  Sender: FDA-Public Use
  Company Number: US-ABBOTT-11P-163-0729492-00

PATIENT
  Sex: Male
  Weight: 84.444 kg

DRUGS (4)
  1. HUMIRA [Suspect]
     Indication: PSORIASIS
     Route: 058
     Dates: start: 20110102, end: 20110206
  2. HUMIRA [Concomitant]
     Indication: PSORIASIS
     Route: 058
     Dates: start: 20030501
  3. METHOTREXATE [Concomitant]
     Indication: PSORIASIS
     Dates: start: 20080101
  4. HUMIRA [Suspect]
     Route: 058
     Dates: start: 20110102, end: 20110501

REACTIONS (2)
  - STAB WOUND [None]
  - WOUND INFECTION [None]
